FAERS Safety Report 7301865-6 (Version None)
Quarter: 2011Q1

REPORT INFORMATION
  Report Type: 
  Country: None (occurrence: None)
  Receive Date: 20110218
  Receipt Date: 20110211
  Transmission Date: 20110831
  Serious: Yes (Other)
  Sender: FDA-Public Use
  Company Number: US-AMGEN-USASP2011008436

PATIENT
  Age: 40 Year
  Sex: Female

DRUGS (3)
  1. ENBREL [Suspect]
     Indication: SYSTEMIC LUPUS ERYTHEMATOSUS
     Dosage: 50 MG, QWK
     Dates: start: 20110203
  2. METHOTREXATE [Concomitant]
     Dosage: UNK
  3. ENBREL [Suspect]
     Indication: SJOGREN'S SYNDROME

REACTIONS (7)
  - CONTUSION [None]
  - FALL [None]
  - MEMORY IMPAIRMENT [None]
  - HEAD INJURY [None]
  - CERVICAL DYSPLASIA [None]
  - HALLUCINATION [None]
  - LOSS OF CONSCIOUSNESS [None]
